FAERS Safety Report 4976970-X (Version None)
Quarter: 2006Q2

REPORT INFORMATION
  Report Type: 
  Country: None (occurrence: None)
  Receive Date: 20060413
  Receipt Date: 20060331
  Transmission Date: 20061013
  Serious: Yes (Hospitalization)
  Sender: FDA-Public Use
  Company Number: 430018M06USA

PATIENT
  Age: 59 Year
  Sex: Male

DRUGS (8)
  1. NOVANTRONE [Suspect]
     Indication: MULTIPLE SCLEROSIS
     Dosage: 23 MG, 1 IN 3 MONTHS
     Dates: start: 20020201, end: 20050201
  2. REBIF [Concomitant]
  3. BACLOFEN [Concomitant]
  4. PROVIGIL [Concomitant]
  5. TYLENOL (COTYLENOL) [Concomitant]
  6. LYRICA [Concomitant]
  7. ZOLOFT [Concomitant]
  8. ROZEREM (ALL OTHER THERAPEUTIC PRODUCTS) [Concomitant]

REACTIONS (2)
  - CARDIAC FAILURE CONGESTIVE [None]
  - CARDIOMYOPATHY [None]
